FAERS Safety Report 9855043 (Version 1)
Quarter: 2014Q1

REPORT INFORMATION
  Report Type: Spontaneous
  Country: GB (occurrence: GB)
  Receive Date: 20140130
  Receipt Date: 20140130
  Transmission Date: 20141002
  Serious: Yes (Congenital Anomaly)
  Sender: FDA-Public Use
  Company Number: GB-MYLANLABS-2014S1001042

PATIENT
  Age: 1 Hour
  Sex: Male
  Weight: 3.25 kg

DRUGS (1)
  1. CITALOPRAM [Suspect]
     Route: 064
     Dates: end: 20120905

REACTIONS (3)
  - Limb malformation [Unknown]
  - Syndactyly [Unknown]
  - Exposure during pregnancy [Unknown]
